FAERS Safety Report 21631392 (Version 1)
Quarter: 2022Q4

REPORT INFORMATION
  Report Type: Report from Study
  Country: US (occurrence: US)
  Receive Date: 20221123
  Receipt Date: 20221123
  Transmission Date: 20230113
  Serious: No
  Sender: FDA-Public Use
  Company Number: US-ABBVIE-22K-163-4466016-00

PATIENT
  Sex: Female

DRUGS (8)
  1. RINVOQ [Suspect]
     Active Substance: UPADACITINIB
     Indication: Rheumatoid arthritis
     Dosage: HOLD FOR A 1 WEEK?LAST ADMIN DATE: 2022
     Route: 048
     Dates: start: 20220211
  2. RINVOQ [Suspect]
     Active Substance: UPADACITINIB
     Indication: Rheumatoid arthritis
     Dosage: LAST ADMIN DATE: 2022
     Route: 048
     Dates: start: 20220701
  3. RINVOQ [Suspect]
     Active Substance: UPADACITINIB
     Indication: Rheumatoid arthritis
     Dosage: FIRST ADMIN DATE: 2022
     Route: 048
  4. COVID-19 VACCINE [Concomitant]
     Indication: COVID-19 immunisation
     Dosage: TIME INTERVAL: 1 TOTAL: 1ST
     Route: 030
  5. COVID-19 VACCINE [Concomitant]
     Indication: COVID-19 immunisation
     Dosage: TIME INTERVAL: 1 TOTAL: 2ND
     Route: 030
  6. COVID-19 VACCINE [Concomitant]
     Indication: COVID-19 immunisation
     Dosage: TIME INTERVAL: 1 TOTAL: 1 BOOSTER
     Route: 030
  7. COVID-19 VACCINE [Concomitant]
     Indication: COVID-19 immunisation
     Dosage: TIME INTERVAL: 1 TOTAL: 2 BOOSTER
     Route: 030
     Dates: start: 202206, end: 202206
  8. XELJANZ [Concomitant]
     Active Substance: TOFACITINIB CITRATE
     Indication: Product used for unknown indication

REACTIONS (6)
  - Musculoskeletal stiffness [Unknown]
  - C-reactive protein abnormal [Unknown]
  - Pain [Unknown]
  - Rheumatoid arthritis [Recovered/Resolved]
  - Rash [Recovered/Resolved]
  - Arthralgia [Recovering/Resolving]

NARRATIVE: CASE EVENT DATE: 20220101
